FAERS Safety Report 7730747-0 (Version None)
Quarter: 2011Q3

REPORT INFORMATION
  Report Type: 
  Country: None (occurrence: None)
  Receive Date: 20110906
  Receipt Date: 20110827
  Transmission Date: 20111222
  Serious: Yes (Other)
  Sender: FDA-Public Use
  Company Number: CN-GLAXOSMITHKLINE-B0743225A

PATIENT
  Age: 4 Day
  Sex: Male

DRUGS (1)
  1. CEFTAZIDIME [Suspect]
     Indication: IMPETIGO
     Dosage: .15G TWICE PER DAY
     Route: 042

REACTIONS (3)
  - DIARRHOEA [None]
  - GASTROINTESTINAL HAEMORRHAGE [None]
  - DIARRHOEA HAEMORRHAGIC [None]
